FAERS Safety Report 15062071 (Version 6)
Quarter: 2018Q4

REPORT INFORMATION
  Report Type: Spontaneous
  Country: US (occurrence: US)
  Receive Date: 20180625
  Receipt Date: 20181011
  Transmission Date: 20190204
  Serious: Yes (Hospitalization, Other)
  Sender: FDA-Public Use
  Company Number: US-ACTELION-A-NJ2018-174319

PATIENT
  Age: 49 Year
  Sex: Female

DRUGS (4)
  1. ADEMPAS [Concomitant]
     Active Substance: RIOCIGUAT
  2. VELETRI [Suspect]
     Active Substance: EPOPROSTENOL
     Dosage: 34 NG/KG, PER MIN
     Route: 042
  3. VELETRI [Suspect]
     Active Substance: EPOPROSTENOL
     Indication: PRODUCT USED FOR UNKNOWN INDICATION
     Dosage: 40 NG/KG, PER MIN
     Route: 042
  4. AMBRISENTAN [Suspect]
     Active Substance: AMBRISENTAN
     Indication: PRODUCT USED FOR UNKNOWN INDICATION
     Dosage: 10 MG, QD
     Route: 048
     Dates: start: 20151221

REACTIONS (13)
  - Chest pain [Not Recovered/Not Resolved]
  - Headache [Not Recovered/Not Resolved]
  - Pain [Not Recovered/Not Resolved]
  - Catheterisation cardiac [Recovered/Resolved]
  - Pneumonia [Unknown]
  - Blood pressure increased [Unknown]
  - Device issue [Unknown]
  - Feeling of body temperature change [Not Recovered/Not Resolved]
  - Pain in jaw [Not Recovered/Not Resolved]
  - Unevaluable event [Unknown]
  - Pulmonary arterial pressure increased [Unknown]
  - Pulmonary congestion [Unknown]
  - Pyrexia [Unknown]

NARRATIVE: CASE EVENT DATE: 20180530
